FAERS Safety Report 16607684 (Version 1)
Quarter: 2019Q3

REPORT INFORMATION
  Report Type: Spontaneous
  Country: RO (occurrence: RO)
  Receive Date: 20190722
  Receipt Date: 20190722
  Transmission Date: 20191004
  Serious: Yes (Life-Threatening, Other)
  Sender: FDA-Public Use
  Company Number: RO-ACCORD-137796

PATIENT
  Age: 63 Year
  Sex: Male

DRUGS (5)
  1. OCTREOTIDE/OCTREOTIDE ACETATE [Concomitant]
     Indication: ACROMEGALY
     Dosage: 20 MG/28D
  2. OXALIPLATIN. [Suspect]
     Active Substance: OXALIPLATIN
     Indication: NEUROENDOCRINE TUMOUR
  3. CISPLATIN. [Suspect]
     Active Substance: CISPLATIN
     Indication: NEUROENDOCRINE TUMOUR
  4. CAPECITABINE. [Suspect]
     Active Substance: CAPECITABINE
     Indication: NEUROENDOCRINE TUMOUR
  5. ETOPOSIDE. [Suspect]
     Active Substance: ETOPOSIDE
     Indication: NEUROENDOCRINE TUMOUR

REACTIONS (5)
  - Agitation [Unknown]
  - Anaemia [Unknown]
  - Confusional state [Unknown]
  - Off label use [Unknown]
  - Drug ineffective [Unknown]
